FAERS Safety Report 6372987-1 (Version None)
Quarter: 2009Q3

REPORT INFORMATION
  Report Type: 
  Country: None (occurrence: None)
  Receive Date: 20090924
  Receipt Date: 20090316
  Transmission Date: 20100115
  Serious: Yes (Other)
  Sender: FDA-Public Use
  Company Number: US-ASTRAZENECA-2009AC00899

PATIENT
  Age: 42 Year
  Sex: Female

DRUGS (7)
  1. QUETIAPINE FUMARATE [Suspect]
  2. QUETIAPINE FUMARATE [Suspect]
  3. VALPROIC ACID [Concomitant]
  4. TOPIRAMATE [Concomitant]
  5. DULOXETINE [Concomitant]
  6. ZIPRASIDONE HCL [Concomitant]
  7. LORAZEPAM [Concomitant]
     Route: 048

REACTIONS (1)
  - BLOOD CREATINE PHOSPHOKINASE INCREASED [None]
